FAERS Safety Report 5047639-0 (Version None)
Quarter: 2006Q2

REPORT INFORMATION
  Report Type: 
  Country: None (occurrence: None)
  Receive Date: 20060601
  Receipt Date: 20060209
  Transmission Date: 20061013
  Serious: No
  Sender: FDA-Public Use
  Company Number: US200602002083

PATIENT
  Age: 45 Year
  Sex: Female

DRUGS (2)
  1. CYMBALTA [Suspect]
     Indication: DEPRESSION
     Dosage: SEE IMAGE
     Dates: start: 20041101, end: 20050401
  2. CYMBALTA [Suspect]
     Indication: DEPRESSION
     Dosage: SEE IMAGE
     Dates: end: 20050401

REACTIONS (5)
  - ANXIETY DISORDER [None]
  - ARTHRALGIA [None]
  - CRYING [None]
  - NECK PAIN [None]
  - SUICIDAL IDEATION [None]
